FAERS Safety Report 20070519 (Version 1)
Quarter: 2021Q4

REPORT INFORMATION
  Report Type: Spontaneous
  Country: SE (occurrence: SE)
  Receive Date: 20211115
  Receipt Date: 20211115
  Transmission Date: 20220303
  Serious: Yes (Life-Threatening, Hospitalization, Other)
  Sender: FDA-Public Use
  Company Number: None

PATIENT
  Age: 31 Year
  Sex: Male
  Weight: 99 kg

DRUGS (7)
  1. OLANZAPINE [Suspect]
     Active Substance: OLANZAPINE
     Indication: Psychotic disorder
     Dosage: 30 MILLIGRAM, QD (10 MG 1X3)
     Route: 048
     Dates: start: 20210812, end: 20210813
  2. CLONIDINE [Suspect]
     Active Substance: CLONIDINE
     Indication: Drug withdrawal syndrome
     Dosage: CATAPRESAN TABLETT 75 MIKROGRAM
     Route: 048
     Dates: start: 20210810, end: 20210817
  3. VALPROIC ACID [Suspect]
     Active Substance: VALPROIC ACID
     Indication: Epilepsy
     Dosage: 900 MILLIGRAM, QD (300 MG 1X3)
     Route: 048
     Dates: start: 20210812, end: 20210812
  4. DIAZEPAM [Concomitant]
     Active Substance: DIAZEPAM
     Dosage: 10 MILLIGRAM, 1X3
     Route: 048
     Dates: start: 20210812, end: 20210813
  5. IBUPROFEN [Concomitant]
     Active Substance: IBUPROFEN
     Dosage: 400 MILLIGRAM, 1X3
     Route: 048
     Dates: start: 20210812, end: 20210813
  6. PHENERGAN                          /00033001/ [Concomitant]
     Dosage: 4 ML VID BEHOV
     Route: 030
     Dates: start: 20210812, end: 20210813
  7. ALIMEMAZINA [Concomitant]
     Dosage: 40 MG/ML 0,5-2 ML VID BEHOV MAX 3 ML/DYGN
     Dates: start: 20210812, end: 20210813

REACTIONS (4)
  - Encephalitis toxic [Not Recovered/Not Resolved]
  - Ammonia increased [Not Recovered/Not Resolved]
  - Myoglobin blood increased [Not Recovered/Not Resolved]
  - Brain stem syndrome [Not Recovered/Not Resolved]

NARRATIVE: CASE EVENT DATE: 20210812
